FAERS Safety Report 8134576-8 (Version None)
Quarter: 2012Q1

REPORT INFORMATION
  Report Type: 
  Country: None (occurrence: None)
  Receive Date: 20120214
  Receipt Date: 20120209
  Transmission Date: 20120608
  Serious: Yes (Other)
  Sender: FDA-Public Use
  Company Number: US-PFIZER INC-2012036598

PATIENT
  Sex: Female
  Weight: 56.7 kg

DRUGS (1)
  1. IBUPROFEN (ADVIL) [Suspect]
     Indication: HEADACHE
     Dosage: UNK
     Dates: end: 20120201

REACTIONS (9)
  - SKIN IRRITATION [None]
  - HYPERSENSITIVITY [None]
  - THROAT TIGHTNESS [None]
  - BLISTER [None]
  - EXPIRED DRUG ADMINISTERED [None]
  - RASH [None]
  - SWELLING FACE [None]
  - EYE SWELLING [None]
  - OEDEMA PERIPHERAL [None]
